FAERS Safety Report 5198005-9 (Version None)
Quarter: 2007Q1

REPORT INFORMATION
  Report Type: 
  Country: None (occurrence: None)
  Receive Date: 20070104
  Receipt Date: 20061228
  Transmission Date: 20070707
  Serious: Yes (Hospitalization)
  Sender: FDA-Public Use
  Company Number: DE-JNJFOC-20061206853

PATIENT
  Age: 66 Year
  Sex: Female

DRUGS (14)
  1. HALDOL [Suspect]
     Route: 048
     Dates: start: 20000531
  2. HALDOL [Suspect]
     Indication: DRUG USE FOR UNKNOWN INDICATION
     Route: 048
     Dates: start: 20000531
  3. TEGRETOL [Suspect]
     Route: 048
     Dates: start: 20000615, end: 20000616
  4. TEGRETOL [Suspect]
     Indication: DRUG USE FOR UNKNOWN INDICATION
     Route: 048
     Dates: start: 20000615, end: 20000616
  5. FUROSEMIDE [Concomitant]
     Route: 048
  6. FUROSEMIDE [Concomitant]
     Dosage: SINCE SEVERAL MONTHS
     Route: 048
  7. LISINOPRIL [Concomitant]
     Route: 048
  8. ASPIRIN [Concomitant]
     Dosage: SINCE SEVERAL MONTHS
     Route: 048
  9. EUTHYROX [Concomitant]
     Dosage: SINCE SEVERAL YEARS
     Route: 048
  10. ATOSIL [Concomitant]
     Route: 048
  11. ATOSIL [Concomitant]
     Route: 048
  12. ATOSIL [Concomitant]
     Route: 048
  13. ATOSIL [Concomitant]
     Route: 048
  14. ATOSIL [Concomitant]
     Route: 048

REACTIONS (1)
  - ATRIAL FLUTTER [None]
